FAERS Safety Report 6973885-2 (Version None)
Quarter: 2010Q3

REPORT INFORMATION
  Report Type: 
  Country: None (occurrence: None)
  Receive Date: 20100909
  Receipt Date: 20100830
  Transmission Date: 20110219
  Serious: Yes (Other)
  Sender: FDA-Public Use
  Company Number: B0673846A

PATIENT
  Age: 75 Year
  Sex: Female

DRUGS (8)
  1. VENTOLIN [Suspect]
     Indication: ASTHMA
     Dates: start: 20100518, end: 20100518
  2. AUGMENTIN '125' [Concomitant]
     Route: 048
  3. FLUMIL [Concomitant]
     Route: 048
  4. SINGULAIR [Concomitant]
     Route: 048
  5. ATROVENT [Concomitant]
     Route: 055
  6. PLUSVENT [Concomitant]
     Route: 055
  7. CIPROFLOXACINO [Concomitant]
     Route: 048
  8. ALLOPURINOL [Concomitant]
     Route: 048

REACTIONS (1)
  - LARYNGOSPASM [None]
